FAERS Safety Report 25117112 (Version 1)
Quarter: 2025Q1

REPORT INFORMATION
  Report Type: Spontaneous
  Country: CA (occurrence: CA)
  Receive Date: 20250325
  Receipt Date: 20250325
  Transmission Date: 20250409
  Serious: Yes (Hospitalization, Other)
  Sender: AUROBINDO
  Company Number: CA-MLMSERVICE-20250306-PI408473-00082-3

PATIENT
  Age: 45 Year
  Sex: Female

DRUGS (5)
  1. CARBOPLATIN [Suspect]
     Active Substance: CARBOPLATIN
     Indication: Small cell carcinoma of the cervix
     Route: 065
     Dates: start: 2023, end: 2023
  2. CISPLATIN [Suspect]
     Active Substance: CISPLATIN
     Indication: Small cell carcinoma of the cervix
     Route: 065
     Dates: start: 2023, end: 2023
  3. ETOPOSIDE [Concomitant]
     Active Substance: ETOPOSIDE
     Indication: Small cell carcinoma of the cervix
     Route: 065
     Dates: start: 2023, end: 2023
  4. DURVALUMAB [Concomitant]
     Active Substance: DURVALUMAB
     Indication: Small cell carcinoma of the cervix
     Route: 065
  5. TOLVAPTAN [Concomitant]
     Active Substance: TOLVAPTAN
     Indication: Small cell carcinoma of the cervix
     Route: 065

REACTIONS (2)
  - Inappropriate antidiuretic hormone secretion [Recovered/Resolved]
  - Hyponatraemia [Recovered/Resolved]

NARRATIVE: CASE EVENT DATE: 20230101
